FAERS Safety Report 25180330 (Version 1)
Quarter: 2025Q2

REPORT INFORMATION
  Report Type: Report from Study
  Country: NL (occurrence: NL)
  Receive Date: 20250409
  Receipt Date: 20250409
  Transmission Date: 20250716
  Serious: Yes (Hospitalization, Other)
  Sender: MYLAN
  Company Number: NL-JAZZ PHARMACEUTICALS-2025-NL-005891

PATIENT
  Age: 27 Year
  Sex: Male

DRUGS (3)
  1. PHENYTOIN [Suspect]
     Active Substance: PHENYTOIN
     Indication: Product used for unknown indication
  2. EPIDIOLEX [Suspect]
     Active Substance: CANNABIDIOL
     Indication: Epilepsy
  3. EPIDIOLEX [Suspect]
     Active Substance: CANNABIDIOL
     Dosage: 10.3 MILLILITER, BID
     Dates: start: 201611

REACTIONS (2)
  - Seizure [Not Recovered/Not Resolved]
  - Treatment noncompliance [Unknown]
